FAERS Safety Report 8288219-3 (Version None)
Quarter: 2012Q2

REPORT INFORMATION
  Report Type: 
  Country: None (occurrence: None)
  Receive Date: 20120416
  Receipt Date: 20120410
  Transmission Date: 20120825
  Serious: Yes (Life-Threatening)
  Sender: FDA-Public Use
  Company Number: FR-BRACCO-000807

PATIENT
  Sex: Female

DRUGS (12)
  1. OXYCONTIN [Suspect]
     Dosage: STRENGTH: 10 MG
     Route: 048
     Dates: start: 20111214, end: 20111214
  2. IOPAMIDOL [Suspect]
     Indication: SPINAL LAMINECTOMY
     Dosage: 200 MG OF IODINE PER ML
     Route: 050
     Dates: start: 20111215, end: 20111215
  3. OXYCODONE HCL [Suspect]
     Dosage: STRENGTH: 10 MG
     Route: 048
     Dates: start: 20111214, end: 20111214
  4. PANTOPRAZOLE [Concomitant]
     Dosage: TAKEN ONCE
     Dates: start: 20111214, end: 20111214
  5. LYRICA [Concomitant]
     Dosage: STRENGTH: 50 MG
     Route: 048
  6. KETOPROFEN [Concomitant]
     Dosage: SINGLE DOSE
     Route: 042
     Dates: start: 20111215, end: 20111215
  7. AMANTADINE HCL [Concomitant]
     Dosage: STRENGTH 100 MG
     Route: 048
     Dates: end: 20120101
  8. IOPAMIDOL [Suspect]
     Indication: DIAGNOSTIC PROCEDURE
     Dosage: 200 MG OF IODINE PER ML
     Route: 050
     Dates: start: 20111215, end: 20111215
  9. REQUIP [Concomitant]
     Route: 048
     Dates: end: 20120101
  10. TEMAZEPAM [Suspect]
     Dosage: STRENGTH: 50 MG
     Route: 048
     Dates: start: 20111214, end: 20111214
  11. AMLODIPINE BESYLATE [Concomitant]
     Dosage: STRENGTH: 5 MG
     Route: 048
  12. SINEMET [Concomitant]
     Dosage: LEVODOPA 100 MG / CARBIDOPA 10 MG
     Route: 048
     Dates: end: 20120101

REACTIONS (3)
  - ACUTE RESPIRATORY FAILURE [None]
  - COMA [None]
  - CONVULSION [None]
